FAERS Safety Report 9761526 (Version 1)
Quarter: 2013Q4

REPORT INFORMATION
  Report Type: Spontaneous
  Country: US (occurrence: US)
  Receive Date: 20131216
  Receipt Date: 20131216
  Transmission Date: 20140711
  Serious: No
  Sender: FDA-Public Use
  Company Number: US-ABBVIE-13P-163-1125008-00

PATIENT
  Age: 51 Year
  Sex: Female

DRUGS (4)
  1. PROMETRIUM [Suspect]
     Indication: MENOPAUSE
     Dosage: IN THE EVENING
     Route: 048
     Dates: start: 2005, end: 2009
  2. PROMETRIUM [Suspect]
     Dosage: IN THE EVENING
     Route: 048
     Dates: start: 2009
  3. PROGESTERONE [Suspect]
     Indication: MENOPAUSE
     Dosage: IN THE EVENING
     Route: 048
     Dates: start: 2009, end: 20130714
  4. PROGESTERONE [Suspect]
     Dosage: IN THE EVENING
     Route: 048
     Dates: start: 2013, end: 2013

REACTIONS (8)
  - Vaginal haemorrhage [Not Recovered/Not Resolved]
  - Breast pain [Not Recovered/Not Resolved]
  - Nausea [Not Recovered/Not Resolved]
  - Hot flush [Not Recovered/Not Resolved]
  - Abdominal pain upper [Not Recovered/Not Resolved]
  - Mood altered [Unknown]
  - Irritability [Unknown]
  - Product substitution issue [Unknown]
